FAERS Safety Report 23192051 (Version 2)
Quarter: 2024Q1

REPORT INFORMATION
  Report Type: Spontaneous
  Country: US (occurrence: US)
  Receive Date: 20231116
  Receipt Date: 20240115
  Transmission Date: 20240409
  Serious: No
  Sender: FDA-Public Use
  Company Number: US-OPELLA-2023OHG013147

PATIENT

DRUGS (1)
  1. GOLD BOND MEDICATED EXTRA STRENGTH BODY [Suspect]
     Active Substance: MENTHOL
     Indication: Product used for unknown indication
     Route: 065

REACTIONS (1)
  - Skin burning sensation [Unknown]
